FAERS Safety Report 13648487 (Version 1)
Quarter: 2017Q2

REPORT INFORMATION
  Report Type: Spontaneous
  Country: US (occurrence: US)
  Receive Date: 20170613
  Receipt Date: 20170613
  Transmission Date: 20170830
  Serious: Yes (Other)
  Sender: FDA-Public Use
  Company Number: US-PFIZER INC-2017252080

PATIENT
  Age: 25 Year
  Sex: Female
  Weight: 49 kg

DRUGS (4)
  1. VICODIN [Concomitant]
     Active Substance: ACETAMINOPHEN\HYDROCODONE BITARTRATE
     Indication: BREAKTHROUGH PAIN
     Dosage: [HYDROCODONE BITARTRATE 5MG]/[PARACETAMOL 500MG], AS NEEDED
     Route: 048
     Dates: start: 1996
  2. CHANTIX [Suspect]
     Active Substance: VARENICLINE TARTRATE
     Dosage: HALF THE STARTER DOSE
  3. PERCOCET [Concomitant]
     Active Substance: ACETAMINOPHEN\OXYCODONE HYDROCHLORIDE
     Indication: CHOLELITHIASIS
     Dosage: EITHER 5 OR 10MG EVERY 4 TO 6 HOURS
  4. CHANTIX [Suspect]
     Active Substance: VARENICLINE TARTRATE
     Indication: SMOKING CESSATION THERAPY
     Dosage: 1 MG, UNK

REACTIONS (15)
  - Malaise [Unknown]
  - Nausea [Unknown]
  - Nervous system disorder [Not Recovered/Not Resolved]
  - Weight decreased [Unknown]
  - Stress [Unknown]
  - Pulmonary mass [Unknown]
  - Bile duct stone [Recovered/Resolved]
  - Lung disorder [Unknown]
  - Bile duct stenosis [Recovered/Resolved]
  - Cervix haemorrhage uterine [Recovered/Resolved]
  - Pancreatitis [Recovered/Resolved]
  - Uterine haemorrhage [Recovered/Resolved]
  - Muscle spasms [Unknown]
  - Respiratory disorder [Unknown]
  - Complex regional pain syndrome [Not Recovered/Not Resolved]

NARRATIVE: CASE EVENT DATE: 2007
